FAERS Safety Report 10327437 (Version 5)
Quarter: 2015Q1

REPORT INFORMATION
  Report Type: Spontaneous
  Country: DE (occurrence: DE)
  Receive Date: 20140721
  Receipt Date: 20150226
  Transmission Date: 20150720
  Serious: Yes (Life-Threatening, Other)
  Sender: FDA-Public Use
  Company Number: DE-BEH-2010022239

PATIENT
  Age: 55 Year
  Sex: Male
  Weight: 95 kg

DRUGS (1)
  1. HAEMATE P [Suspect]
     Active Substance: ANTIHEMOPHILIC FACTOR HUMAN
     Indication: VON WILLEBRAND^S DISEASE
     Route: 042
     Dates: start: 20010116

REACTIONS (5)
  - Von Willebrand^s factor activity increased [Unknown]
  - Pulmonary embolism [Recovered/Resolved]
  - Accidental overdose [Recovered/Resolved]
  - Coagulation factor VIII level increased [Unknown]
  - Von Willebrand^s factor antigen increased [Unknown]

NARRATIVE: CASE EVENT DATE: 20010122
